FAERS Safety Report 5116892-7 (Version None)
Quarter: 2006Q3

REPORT INFORMATION
  Report Type: 
  Country: None (occurrence: None)
  Receive Date: 20060925
  Receipt Date: 20060911
  Transmission Date: 20061208
  Serious: Yes (Hospitalization)
  Sender: FDA-Public Use
  Company Number: SPV1-2006-00742

PATIENT
  Age: 76 Year
  Sex: Male

DRUGS (10)
  1. CARBAMAZEPINE [Suspect]
     Indication: PARTIAL SEIZURES
     Dosage: SEE IMAGE
  2. PHENYTOIN [Concomitant]
  3. ISOSORBIDE MONONITRATE [Concomitant]
  4. LISINOPRIL [Concomitant]
  5. FUROSEMIDE [Concomitant]
  6. SIMVASTATIN [Concomitant]
  7. ASPIRIN [Concomitant]
  8. AMLODIPINE [Concomitant]
  9. QUININE SULFATE [Concomitant]
  10. NITROGLYCERIN [Concomitant]

REACTIONS (9)
  - ALANINE AMINOTRANSFERASE INCREASED [None]
  - CARDIOMEGALY [None]
  - DRUG HYPERSENSITIVITY [None]
  - EOSINOPHILIA [None]
  - LYMPHADENOPATHY [None]
  - LYMPHOCYTOSIS [None]
  - PYREXIA [None]
  - RASH GENERALISED [None]
  - SKIN OEDEMA [None]
